FAERS Safety Report 7656394-7 (Version None)
Quarter: 2011Q3

REPORT INFORMATION
  Report Type: 
  Country: None (occurrence: None)
  Receive Date: 20110804
  Receipt Date: 20110725
  Transmission Date: 20111222
  Serious: Yes (Death)
  Sender: FDA-Public Use
  Company Number: US-GLAXOSMITHKLINE-A0939170A

PATIENT
  Age: 67 Year
  Sex: Male

DRUGS (2)
  1. PROMACTA [Suspect]
     Indication: AUTOIMMUNE THROMBOCYTOPENIA
     Dosage: 25MG PER DAY
     Route: 048
     Dates: start: 20110217, end: 20110324
  2. PREDNISONE [Concomitant]
     Indication: IDIOPATHIC THROMBOCYTOPENIC PURPURA

REACTIONS (4)
  - HAEMATOLOGICAL MALIGNANCY [None]
  - IDIOPATHIC THROMBOCYTOPENIC PURPURA [None]
  - DISEASE PROGRESSION [None]
  - DRUG INEFFECTIVE [None]
